FAERS Safety Report 4551135-4 (Version None)
Quarter: 2005Q1

REPORT INFORMATION
  Report Type: 
  Country: None (occurrence: None)
  Receive Date: 20050113
  Receipt Date: 20050104
  Transmission Date: 20050727
  Serious: Yes (Other)
  Sender: FDA-Public Use
  Company Number: US-JNJFOC-20050100985

PATIENT
  Age: 41 Year
  Sex: Male
  Weight: 85.55 kg

DRUGS (6)
  1. REMICADE [Suspect]
     Route: 042
  2. REMICADE [Suspect]
     Route: 042
  3. LOMOTIL [Concomitant]
  4. LOMOTIL [Concomitant]
  5. BENTYL [Concomitant]
  6. COLAZAL [Concomitant]

REACTIONS (1)
  - SYSTEMIC LUPUS ERYTHEMATOSUS [None]
